FAERS Safety Report 5801526-6 (Version None)
Quarter: 2008Q3

REPORT INFORMATION
  Report Type: 
  Country: None (occurrence: None)
  Receive Date: 20080707
  Receipt Date: 20080626
  Transmission Date: 20090109
  Serious: Yes (Other)
  Sender: FDA-Public Use
  Company Number: JP-JNJFOC-20080601930

PATIENT
  Sex: Male

DRUGS (4)
  1. ITRIZOLE [Suspect]
     Dosage: TOTAL OF 4 TABLETS ADMINISTERED
     Route: 048
  2. ITRIZOLE [Suspect]
     Indication: SPOROTRICHOSIS
     Dosage: TOTAL OF 4 TABLETS ADMINISTERED
     Route: 048
  3. MEIACT [Concomitant]
     Indication: INFECTED EPIDERMAL CYST
     Route: 048
  4. ISALON [Concomitant]
     Indication: INFECTED EPIDERMAL CYST
     Route: 048

REACTIONS (2)
  - HYPOKALAEMIA [None]
  - MYOPATHY [None]
